FAERS Safety Report 9890778 (Version 1)
Quarter: 2014Q1

REPORT INFORMATION
  Report Type: Spontaneous
  Country: US (occurrence: None)
  Receive Date: 20140207
  Receipt Date: 20140207
  Transmission Date: 20141002
  Serious: Yes (Disabling, Other)
  Sender: FDA-Public Use
  Company Number: PR-AE14-000055

PATIENT
  Age: 43 Year
  Sex: Female

DRUGS (8)
  1. BC POWDERS [Suspect]
     Indication: HEADACHE
     Dosage: 3-5 POWDER/DAY, ORAL
     Route: 048
     Dates: start: 199401
  2. SYNTHROID (LEVOTHYROXINE SODIUM) [Concomitant]
  3. LINZESS (LINACLOTIDE) [Concomitant]
  4. SEROQUEL (QUETIAPINE FUMARATE) [Concomitant]
  5. LIPITOR (ATORVASTATIN CALCIUM) [Concomitant]
  6. VALIUM (DIAZEPAM) [Concomitant]
  7. ALLEGRA (FEXOFENADINE) [Concomitant]
  8. ESTRADIOL [Concomitant]

REACTIONS (3)
  - Deafness [None]
  - Dependence [None]
  - Drug ineffective [None]
